FAERS Safety Report 8184709-2 (Version None)
Quarter: 2012Q1

REPORT INFORMATION
  Report Type: 
  Country: None (occurrence: None)
  Receive Date: 20120305
  Receipt Date: 20120305
  Transmission Date: 20120608
  Serious: Yes (Other)
  Sender: FDA-Public Use
  Company Number: None

PATIENT
  Age: 4 Year
  Sex: Male
  Weight: 25.401 kg

DRUGS (1)
  1. SINGULAIR [Suspect]
     Indication: ASTHMA
     Dates: start: 20120213, end: 20120226

REACTIONS (6)
  - EDUCATIONAL PROBLEM [None]
  - IRRITABILITY [None]
  - AGITATION [None]
  - AGGRESSION [None]
  - HOSTILITY [None]
  - ABNORMAL BEHAVIOUR [None]
